FAERS Safety Report 8413893-8 (Version None)
Quarter: 2012Q2

REPORT INFORMATION
  Report Type: 
  Country: None (occurrence: None)
  Receive Date: 20120323
  Receipt Date: 20110309
  Transmission Date: 20120825
  Serious: Yes (Other)
  Sender: FDA-Public Use
  Company Number: 163-21880-11022792

PATIENT
  Age: 75 Year
  Sex: Male

DRUGS (3)
  1. DECADRON [Concomitant]
  2. VELCADE [Concomitant]
  3. REVLIMID [Suspect]
     Indication: MULTIPLE MYELOMA
     Dosage: 25 MG, DAILY X 21 DAYS OUT OF 28 DAYS, PO
     Route: 048
     Dates: start: 20110117, end: 20110222

REACTIONS (3)
  - RASH MACULO-PAPULAR [None]
  - PRURITUS [None]
  - RASH GENERALISED [None]
